FAERS Safety Report 9155030 (Version 3)
Quarter: 2013Q2

REPORT INFORMATION
  Report Type: Spontaneous
  Country: JP (occurrence: None)
  Receive Date: 20130208
  Receipt Date: 20130418
  Transmission Date: 20140414
  Serious: Yes (Other)
  Sender: FDA-Public Use
  Company Number: SPI201300052

PATIENT
  Age: 48 Year
  Sex: Female
  Weight: 52 kg

DRUGS (3)
  1. AMITIZA (LUBIPROSTONE) CAPSULE, 24MCG [Suspect]
     Indication: CONSTIPATION
     Dosage: 24 MCG, BID, ORAL
     Route: 048
     Dates: start: 20121214, end: 20121214
  2. PURSENNID (SENNOSIDE) [Concomitant]
  3. ALOSENN (ACHILLEA MILLEFOLIUM, RUBIA TINCTORUM ROOT TINCTURE, SENNA ALEXANDRINA FRUIT, SENNA ALEXANDRINA LEAF, TARAXACUM OFFICINALE) [Concomitant]

REACTIONS (10)
  - Vertigo [None]
  - Hypoaesthesia [None]
  - Visual impairment [None]
  - Depressed level of consciousness [None]
  - Dizziness [None]
  - Vomiting [None]
  - Nausea [None]
  - Syncope [None]
  - Hypoaesthesia [None]
  - Feeling cold [None]
